FAERS Safety Report 19162924 (Version 1)
Quarter: 2021Q2

REPORT INFORMATION
  Report Type: Spontaneous
  Country: US (occurrence: US)
  Receive Date: 20210420
  Receipt Date: 20210420
  Transmission Date: 20210717
  Serious: No
  Sender: FDA-Public Use
  Company Number: None

PATIENT
  Age: 51 Year
  Sex: Female

DRUGS (1)
  1. PREVYMIS [Suspect]
     Active Substance: LETERMOVIR
     Dosage: ?          OTHER DOSE:UNK;OTHER FREQUENCY:OTHER;?
     Route: 048
     Dates: start: 202102, end: 202102

REACTIONS (8)
  - Near death experience [None]
  - Stem cell transplant [None]
  - Nonspecific reaction [None]
  - Cardiac valve disease [None]
  - Acute kidney injury [None]
  - Pericardial effusion [None]
  - Therapy interrupted [None]
  - Pleural effusion [None]

NARRATIVE: CASE EVENT DATE: 20210201
